FAERS Safety Report 7656046-3 (Version None)
Quarter: 2011Q3

REPORT INFORMATION
  Report Type: 
  Country: None (occurrence: None)
  Receive Date: 20110804
  Receipt Date: 20110725
  Transmission Date: 20111222
  Serious: Yes (Hospitalization, Other)
  Sender: FDA-Public Use
  Company Number: US-ELI_LILLY_AND_COMPANY-US201107008151

PATIENT
  Age: 63 Year
  Sex: Female

DRUGS (5)
  1. TOPROL-XL [Concomitant]
  2. HEPARIN [Concomitant]
  3. EFFIENT [Suspect]
     Indication: PERCUTANEOUS CORONARY INTERVENTION
     Dosage: 60 MG, ONCE
     Dates: start: 20110708, end: 20110718
  4. TPN [Concomitant]
  5. AMIODARONE HCL [Concomitant]

REACTIONS (3)
  - CORONARY ARTERY BYPASS [None]
  - PLATELET COUNT DECREASED [None]
  - INTRA-AORTIC BALLOON PLACEMENT [None]
